FAERS Safety Report 20895913 (Version 2)
Quarter: 2022Q2

REPORT INFORMATION
  Report Type: Report from Study
  Country: EG (occurrence: EG)
  Receive Date: 20220531
  Receipt Date: 20220611
  Transmission Date: 20220721
  Serious: Yes (Hospitalization, Other)
  Sender: FDA-Public Use
  Company Number: EG-NOVARTISPH-NVSC2022EG123895

PATIENT
  Sex: Female

DRUGS (2)
  1. GILENYA [Suspect]
     Active Substance: FINGOLIMOD HYDROCHLORIDE
     Indication: Multiple sclerosis
     Dosage: 0.5 MG, QD
     Route: 048
     Dates: start: 2019
  2. TRYPTIZOL [Concomitant]
     Active Substance: AMITRIPTYLINE HYDROCHLORIDE
     Indication: Sedation
     Dosage: UNK, TID, (SHE ADIMINISTERS IT TWICE PER DAY)
     Route: 065
     Dates: start: 20220604

REACTIONS (15)
  - Multiple sclerosis [Recovering/Resolving]
  - Limb discomfort [Recovering/Resolving]
  - Vision blurred [Recovering/Resolving]
  - Hypotension [Recovered/Resolved]
  - Heart rate irregular [Recovered/Resolved]
  - Optic atrophy [Unknown]
  - Condition aggravated [Unknown]
  - Abdominal pain upper [Not Recovered/Not Resolved]
  - Eye discharge [Not Recovered/Not Resolved]
  - Vein disorder [Not Recovered/Not Resolved]
  - Platelet count increased [Unknown]
  - Decreased appetite [Not Recovered/Not Resolved]
  - White blood cell count decreased [Unknown]
  - Weight decreased [Not Recovered/Not Resolved]
  - Product dose omission issue [Unknown]

NARRATIVE: CASE EVENT DATE: 20190101
